FAERS Safety Report 21646672 (Version 1)
Quarter: 2022Q4

REPORT INFORMATION
  Report Type: Spontaneous
  Country: GB (occurrence: GB)
  Receive Date: 20221127
  Receipt Date: 20221127
  Transmission Date: 20230113
  Serious: Yes (Life-Threatening, Hospitalization, Disabling, Other)
  Sender: FDA-Public Use
  Company Number: None

PATIENT
  Age: 31 Year
  Sex: Female
  Weight: 64 kg

DRUGS (101)
  1. LORAZEPAM [Interacting]
     Active Substance: LORAZEPAM
     Indication: Sedation
     Dosage: 4 MILLIGRAM DAILY; 1 MG, 4 TIMES PER DAY, DURATION : 45 DAYS
     Route: 048
     Dates: start: 20110224, end: 20110410
  2. LORAZEPAM [Interacting]
     Active Substance: LORAZEPAM
     Dosage: 4 MILLIGRAM DAILY; 4 MG, ONCE PER DAY, DURATION : 68 DAYS
     Route: 048
     Dates: start: 20110202, end: 20110410
  3. LORAZEPAM [Interacting]
     Active Substance: LORAZEPAM
     Dosage: 4 MILLIGRAM DAILY; 4 MG, ONCE PER DAY, DURATION : 36 DAYS
     Route: 048
     Dates: start: 20110523, end: 20110627
  4. LORAZEPAM [Interacting]
     Active Substance: LORAZEPAM
     Dosage: 16 MILLIGRAM DAILY; 4 MG, 4 TIMES PER DAY, DURATION : 46 DAYS
     Route: 048
     Dates: start: 20110224, end: 20110410
  5. LORAZEPAM [Interacting]
     Active Substance: LORAZEPAM
     Dosage: 4 MILLIGRAM DAILY; 1 MG, 4 TIMES PER DAY,, DURATION : 45 DAYS
     Route: 048
     Dates: start: 20110224, end: 20110410
  6. LORAZEPAM [Interacting]
     Active Substance: LORAZEPAM
     Dosage: UNIT DOSE : 1 MG, THERAPY END DATE : NASK
     Route: 048
     Dates: start: 20110725
  7. LORAZEPAM [Interacting]
     Active Substance: LORAZEPAM
     Dosage: 4 MILLIGRAM DAILY; 1 MG, 4 TIMES PER DAY, DURATION : 36 DAYS
     Route: 048
     Dates: start: 20110523, end: 20110627
  8. LORAZEPAM [Interacting]
     Active Substance: LORAZEPAM
     Dosage: 4 MILLIGRAM DAILY; 1 MG, 4 TIMES PER DAY,  DURATION : 45 DAYS
     Route: 048
     Dates: start: 20110224, end: 20110410
  9. LORAZEPAM [Interacting]
     Active Substance: LORAZEPAM
     Dosage: 4 MILLIGRAM DAILY; 1 MG, 4 TIMES PER DAY,  DURATION : 45 DAYS
     Route: 048
     Dates: start: 20110224, end: 20110410
  10. LORAZEPAM [Interacting]
     Active Substance: LORAZEPAM
     Dosage: 1 MILLIGRAM DAILY; 1 MG, ONCE PER DAY, DURATION : 160 DAYS, THERAPY END DATE : NASK
     Route: 048
     Dates: start: 20110725
  11. LORAZEPAM [Interacting]
     Active Substance: LORAZEPAM
     Dosage: 4 MILLIGRAM DAILY; 1 MG, 4 TIMES PER DAY,  DURATION : 46 DAYS
     Route: 048
     Dates: start: 20110224, end: 20110410
  12. QUETIAPINE [Interacting]
     Active Substance: QUETIAPINE
     Indication: Psychotic disorder
     Dosage: UNIT DOSE : 300 MG, THERAPY DURATION : 72 DAYS, QUETIAPINE FUMARATE
     Route: 048
     Dates: start: 20110224, end: 20110506
  13. QUETIAPINE [Interacting]
     Active Substance: QUETIAPINE
     Dosage: UNK,  UNK, THERAPY DURATION : 4358 DAYS
     Route: 048
     Dates: start: 19990801, end: 20110706
  14. QUETIAPINE [Interacting]
     Active Substance: QUETIAPINE
     Dosage: UNIT DOSE : 300 MG, THERAPY DURATION : 72 DAYS
     Route: 048
     Dates: start: 20110224, end: 20110506
  15. QUETIAPINE [Interacting]
     Active Substance: QUETIAPINE
     Dosage: UNK,  UNK, THERAPY DURATION : 4358 DAYS, QUETIAPINE FUMARATE
     Route: 048
     Dates: start: 19990801, end: 20110706
  16. PAROXETINE [Interacting]
     Active Substance: PAROXETINE
     Indication: Post-traumatic stress disorder
     Dosage: 40 MG,UNK, UNIT DOSE : 40 MG, DURATION : 2 MONTHS
     Route: 048
     Dates: start: 201105, end: 20110706
  17. PAROXETINE [Interacting]
     Active Substance: PAROXETINE
     Indication: Depression
     Dosage: 60 MILLIGRAM DAILY; 60 MG, ONCE PER DAY, DURATION : 4357DAYS
     Route: 048
     Dates: start: 19990801, end: 201105
  18. PAROXETINE [Interacting]
     Active Substance: PAROXETINE
     Dosage: 20 MG, 3 TIMES PER DAY,, DURATION : 14 YEARS
     Route: 048
     Dates: start: 1997, end: 201105
  19. PAROXETINE [Interacting]
     Active Substance: PAROXETINE
     Dosage: UNK,  UNK, THERAPY END DATE : NASK, DURATION : 4357 DAYS
     Route: 048
     Dates: start: 1996
  20. PAROXETINE [Interacting]
     Active Substance: PAROXETINE
     Dosage: 60 MILLIGRAM DAILY; 20 MG, 3 TIMES PER DAY,  DURATION : 11 YEARS
     Route: 048
     Dates: start: 199908, end: 201105
  21. PAROXETINE [Interacting]
     Active Substance: PAROXETINE
     Dosage: 40 MILLIGRAM DAILY; 40 MG, ONCE PER DAY, DURATION : 4358 DAYS
     Route: 048
     Dates: start: 19990801, end: 20110706
  22. PAROXETINE [Interacting]
     Active Substance: PAROXETINE
     Dosage: UNK,  UNK, THERAPY END DATE : NASK
     Route: 065
     Dates: start: 201012
  23. PAROXETINE [Interacting]
     Active Substance: PAROXETINE
     Dosage: UNK,  UNK, THERAPY DURATION : 15YEARS
     Route: 048
     Dates: start: 1996, end: 201105
  24. PAROXETINE [Interacting]
     Active Substance: PAROXETINE
     Dosage: UNK,  UNK
  25. PAROXETINE [Interacting]
     Active Substance: PAROXETINE
     Dosage: 60 MG,UNK, UNIT DOSE : 60 MG, THERAPY DURATION : 4357 DAYS
     Route: 048
     Dates: start: 1997, end: 201105
  26. PAROXETINE [Interacting]
     Active Substance: PAROXETINE
     Dosage: 20 MILLIGRAM DAILY; 20 MG, ONCE PER DAY, DURATION : 60 DAYS
     Route: 048
     Dates: start: 201105, end: 20110706
  27. PAROXETINE [Interacting]
     Active Substance: PAROXETINE
     Dosage: 180 MILLIGRAM DAILY; 60 MG, 3 TIMES PER DAY, DURATION : 4357 DAYS, THERAPY END DATE : NASK
     Route: 048
     Dates: start: 1997
  28. MIRTAZAPINE [Interacting]
     Active Substance: MIRTAZAPINE
     Indication: Psychotic disorder
     Dosage: 15 MG,  UNK (30MG IN THE DAY AND 15MG AT NIGHT), UNIT DOSE : 15 MG, DURATION : 72 DAYS
     Route: 065
     Dates: start: 20110224, end: 20110506
  29. MIRTAZAPINE [Interacting]
     Active Substance: MIRTAZAPINE
     Indication: Depression
     Dosage: 30 MILLIGRAM DAILY; 30 MG, ONCE PER DAY (UNSURE),  DURATION : 47 DAYS
     Route: 048
     Dates: start: 20100923, end: 20101108
  30. MIRTAZAPINE [Interacting]
     Active Substance: MIRTAZAPINE
     Dosage: 30 MILLIGRAM DAILY; 30 MG, ONCE PER DAY, DURATION : 6 DAYS
     Route: 048
     Dates: start: 20101007, end: 20101012
  31. MIRTAZAPINE [Interacting]
     Active Substance: MIRTAZAPINE
     Dosage: 30 MILLIGRAM DAILY; 30 MG, ONCE PER DAY,  DURATION : 72 DAYS
     Route: 048
     Dates: start: 20110224, end: 20110506
  32. MIRTAZAPINE [Interacting]
     Active Substance: MIRTAZAPINE
     Dosage: UNK,  UNK, THERAPY DURATION : 47 DAYS
     Route: 065
     Dates: start: 20100923, end: 20101108
  33. MIRTAZAPINE [Interacting]
     Active Substance: MIRTAZAPINE
     Dosage: 30 MILLIGRAM DAILY; 15 MG, 2 TIMES PER DAY,  DURATION : 47 DAYS
     Dates: start: 20101007, end: 20101012
  34. MIRTAZAPINE [Interacting]
     Active Substance: MIRTAZAPINE
     Dosage: 30 MILLIGRAM DAILY; 30 MG, ONCE PER DAY, DURATION : 52 DAYS
     Route: 048
  35. MIRTAZAPINE [Interacting]
     Active Substance: MIRTAZAPINE
     Dosage: UNK,  UNK, THERAPY DURATION : 47 DAYS
     Dates: start: 20110224, end: 20110506
  36. OMEPRAZOLE [Interacting]
     Active Substance: OMEPRAZOLE
     Indication: Dyspepsia
     Dosage: 20 MILLIGRAM DAILY; 20 MG, ONCE PER DAY (Q24H), THERAPY END DATE : NASK
     Route: 065
     Dates: start: 20110525
  37. OMEPRAZOLE [Interacting]
     Active Substance: OMEPRAZOLE
     Dosage: 20 MILLIGRAM DAILY; 20 MG, ONCE PER DAY,
     Route: 048
  38. CLONAZEPAM [Interacting]
     Active Substance: CLONAZEPAM
     Indication: Sedation
     Dosage: UNK, UNK (UNSURE), THERAPY START DATE : NASK, DURATION : 45 DAYS
     Route: 048
     Dates: end: 20110410
  39. CLONAZEPAM [Interacting]
     Active Substance: CLONAZEPAM
     Dosage: UNK, UNK (UNSURE), THERAPY DURATION : 46 DAYS
     Route: 048
     Dates: start: 20110224, end: 20110410
  40. TRAMADOL HYDROCHLORIDE [Interacting]
     Active Substance: TRAMADOL HYDROCHLORIDE
     Indication: Analgesic therapy
     Dosage: 8 MG,  UNK, UNIT DOSE : 8 MG, THERAPY END DATE : NASK
     Route: 065
     Dates: start: 20110725
  41. TRAMADOL HYDROCHLORIDE [Interacting]
     Active Substance: TRAMADOL HYDROCHLORIDE
     Indication: Neck pain
     Dosage: 5 MG,  UNK, UNIT DOSE : 5 MG, THERAPY DURATION : 1 YEARS
     Route: 044
     Dates: start: 1995, end: 1996
  42. TRAMADOL HYDROCHLORIDE [Interacting]
     Active Substance: TRAMADOL HYDROCHLORIDE
     Indication: Back pain
     Dosage: 4 DOSAGE FORM,  UNK, UNIT DOSE : 4 DOSAGE FORMS
     Route: 048
  43. TRAMADOL HYDROCHLORIDE [Interacting]
     Active Substance: TRAMADOL HYDROCHLORIDE
     Indication: Oculogyric crisis
     Dosage: UNK,  UNK (4 CYCLICAL, QD), THERAPY DURATION : 739 DAYS, THERAPY END DATE : NASK
     Route: 048
     Dates: start: 20080722
  44. TRAMADOL HYDROCHLORIDE [Interacting]
     Active Substance: TRAMADOL HYDROCHLORIDE
     Dosage: UNK,  UNK, THERAPY DURATION : 740 DAYS
     Route: 048
     Dates: start: 20081201, end: 20101210
  45. TRAMADOL HYDROCHLORIDE [Interacting]
     Active Substance: TRAMADOL HYDROCHLORIDE
     Dosage: 20 MG,  UNK, UNIT DOSE : 20 MG, THERAPY END DATE : NASK
     Route: 065
     Dates: start: 20110725
  46. TRAMADOL HYDROCHLORIDE [Interacting]
     Active Substance: TRAMADOL HYDROCHLORIDE
     Dosage: 4 MILLIGRAM DAILY; 4 MG, ONCE PER DAY( (4 CYCLICAL, QD 50-100 MG QD),  DURATION : 740 DAYS
     Route: 048
     Dates: start: 20081201, end: 20101210
  47. TRAMADOL HYDROCHLORIDE [Interacting]
     Active Substance: TRAMADOL HYDROCHLORIDE
     Dosage: UNK,  UNK (4 OT, QD), THERAPY END DATE : NASK
     Route: 048
     Dates: start: 20080722
  48. TRAMADOL HYDROCHLORIDE [Interacting]
     Active Substance: TRAMADOL HYDROCHLORIDE
     Dosage: 1 DOSAGE FORM,  UNK, UNIT DOSE : 1 DOSAGE FORMS, THERAPY END DATE : NASK
     Route: 065
     Dates: start: 20110725
  49. TRAMADOL HYDROCHLORIDE [Interacting]
     Active Substance: TRAMADOL HYDROCHLORIDE
     Dosage: UNK,  UNK, THERAPY DURATION : 1 YEARS
     Dates: start: 2008, end: 2009
  50. TRAMADOL HYDROCHLORIDE [Interacting]
     Active Substance: TRAMADOL HYDROCHLORIDE
     Dosage: UNK,  UNK, THERAPY DURATION : 739 DAYS
     Route: 044
     Dates: start: 20081208, end: 20101210
  51. TRAMADOL HYDROCHLORIDE [Interacting]
     Active Substance: TRAMADOL HYDROCHLORIDE
     Dosage: 100 MILLIGRAM DAILY; 100 MG, ONCE PER DAY,  DURATION : 740 DAYS
     Route: 048
     Dates: start: 20081201, end: 20101210
  52. CODEINE PHOSPHATE [Interacting]
     Active Substance: CODEINE PHOSPHATE
     Indication: Serotonin syndrome
     Dosage: 120 MILLIGRAM DAILY; 30 MG, 4 TIMES PER DAY, , DURATION : 38 DAYS
     Route: 048
     Dates: start: 2008, end: 2008
  53. CODEINE PHOSPHATE [Interacting]
     Active Substance: CODEINE PHOSPHATE
     Indication: Analgesic therapy
     Dosage: UNK,  UNK, THERAPY DURATION : 46 DAYS
     Route: 065
     Dates: start: 20110224, end: 20110410
  54. CODEINE PHOSPHATE [Interacting]
     Active Substance: CODEINE PHOSPHATE
     Dosage: 120 MILLIGRAM DAILY; 30 MG, 4 TIMES PER DAY, DURATION : 38 DAYS
     Route: 048
     Dates: start: 2002, end: 2002
  55. CODEINE PHOSPHATE [Interacting]
     Active Substance: CODEINE PHOSPHATE
     Dosage: UNK, UNK (EVERY 24 HOURS) (15-30 MG), THERAPY DURATION : 38 DAYS
     Route: 048
     Dates: start: 20110615, end: 20110723
  56. CODEINE PHOSPHATE [Interacting]
     Active Substance: CODEINE PHOSPHATE
     Dosage: UNK,  UNK, THERAPY DURATION : 46 DAYS
     Route: 048
     Dates: start: 20110224, end: 20110410
  57. CODEINE PHOSPHATE [Interacting]
     Active Substance: CODEINE PHOSPHATE
     Dosage: 120 MILLIGRAM DAILY; 30 MG, 4 TIMES PER DAY,  DURATION : 38 DAYS, THERAPY END DATE : NASK
     Route: 065
     Dates: start: 2008
  58. CODEINE PHOSPHATE [Interacting]
     Active Substance: CODEINE PHOSPHATE
     Dosage: 120 MILLIGRAM DAILY; 30 MG, 4 TIMES PER DAY, DURATION : 38 DAYS, THERAPY END DATE : NASK
     Route: 065
     Dates: start: 2002
  59. CODEINE PHOSPHATE [Interacting]
     Active Substance: CODEINE PHOSPHATE
     Dosage: 120 MILLIGRAM DAILY; 30 MG, 4 TIMES PER DAY, DURATION : 39 DAYS
     Route: 048
     Dates: start: 20110615, end: 20110723
  60. DIAZEPAM [Interacting]
     Active Substance: DIAZEPAM
     Indication: Depression
     Dosage: 8 MG, UNK (EVERY 24 HOURS), UNIT DOSE : 8 MG
     Route: 048
  61. DIAZEPAM [Interacting]
     Active Substance: DIAZEPAM
     Indication: Serotonin syndrome
     Dosage: 20 MILLIGRAM DAILY; 20 MG, ONCE PER DAY (20 MG, QD 5 MILLIGRAM, QID (5 MG QDS AND NOW ON 2-2-4 MG),
     Route: 048
     Dates: start: 20110725, end: 20110725
  62. DIAZEPAM [Interacting]
     Active Substance: DIAZEPAM
     Indication: Muscle spasms
     Dosage: UNK,  UNK, THERAPY END DATE : NASK
     Dates: start: 20110725
  63. DIAZEPAM [Interacting]
     Active Substance: DIAZEPAM
     Dosage: UNK,  UNK
  64. DIAZEPAM [Interacting]
     Active Substance: DIAZEPAM
     Dosage: 32 MILLIGRAM DAILY; 8 MG, 4 TIMES PER DAY, THERAPY END DATE : NASK
     Route: 048
     Dates: start: 20110725
  65. DIAZEPAM [Interacting]
     Active Substance: DIAZEPAM
     Dosage: 20 MILLIGRAM DAILY; 5 MG, 4 TIMES PER DAY (20 MG, QD 5 MILLIGRAM, QID (5 MG QDS AND NOW), THERAPY EN
     Route: 048
     Dates: start: 20110725
  66. AMITRIPTYLINE HYDROCHLORIDE [Interacting]
     Active Substance: AMITRIPTYLINE HYDROCHLORIDE
     Indication: Neuralgia
     Dosage: UNK,  UNK (AT NIGHT)
     Route: 065
  67. AMITRIPTYLINE HYDROCHLORIDE [Interacting]
     Active Substance: AMITRIPTYLINE HYDROCHLORIDE
     Indication: Serotonin syndrome
     Dosage: UNK,UNK
     Route: 065
  68. AMITRIPTYLINE HYDROCHLORIDE [Interacting]
     Active Substance: AMITRIPTYLINE HYDROCHLORIDE
     Indication: Muscle spasms
     Dosage: UNK,  UNK
     Route: 065
  69. AMITRIPTYLINE HYDROCHLORIDE [Interacting]
     Active Substance: AMITRIPTYLINE HYDROCHLORIDE
     Indication: Drug withdrawal syndrome
     Dosage: 25 MILLIGRAM DAILY; 25 MG, ONCE PER DAY (25 MG AT NIGHT), THERAPY END DATE : NASK,
     Route: 065
     Dates: start: 20110810
  70. AMITRIPTYLINE HYDROCHLORIDE [Interacting]
     Active Substance: AMITRIPTYLINE HYDROCHLORIDE
     Indication: Sedation
     Dosage: UNK,  UNK
     Route: 065
  71. AMITRIPTYLINE HYDROCHLORIDE [Interacting]
     Active Substance: AMITRIPTYLINE HYDROCHLORIDE
     Dosage: UNK,  UNK (AT NIGHT)
     Route: 065
  72. AMITRIPTYLINE HYDROCHLORIDE [Interacting]
     Active Substance: AMITRIPTYLINE HYDROCHLORIDE
     Dosage: UNK,UNK
     Route: 065
  73. DOMPERIDONE [Interacting]
     Active Substance: DOMPERIDONE
     Indication: Product used for unknown indication
     Dosage: UNK, UNK, THERAPY DURATION : 46 DAYS
     Route: 065
  74. DOMPERIDONE [Interacting]
     Active Substance: DOMPERIDONE
     Dosage: UNK,  UNK, THERAPY DURATION : 46 DAYS
     Route: 065
  75. DOMPERIDONE [Interacting]
     Active Substance: DOMPERIDONE
     Dosage: UNK,UNK
     Route: 065
  76. DOMPERIDONE [Interacting]
     Active Substance: DOMPERIDONE
     Dosage: UNK,  UNK, THERAPY DURATION : 47 DAYS
     Route: 048
     Dates: start: 20100923, end: 20101108
  77. PHOSPHORUS [Interacting]
     Active Substance: PHOSPHORUS
     Indication: Product used for unknown indication
     Dosage: UNK,UNK
     Route: 065
  78. PHOSPHORUS [Interacting]
     Active Substance: PHOSPHORUS
     Dosage: UNK,  UNK
     Route: 065
  79. PROCYCLIDINE HYDROCHLORIDE [Interacting]
     Active Substance: PROCYCLIDINE HYDROCHLORIDE
     Indication: Extrapyramidal disorder
     Dosage: 5 MILLIGRAM DAILY; 5 MG, ONCE PER DAY,, DURATION : 7 DAYS
     Route: 048
     Dates: start: 1995, end: 1996
  80. PROCYCLIDINE HYDROCHLORIDE [Interacting]
     Active Substance: PROCYCLIDINE HYDROCHLORIDE
     Indication: Oculogyric crisis
     Dosage: UNK,UNK, THERAPY DURATION : 7 DAYS, THERAPY END DATE : NASK
     Route: 065
     Dates: start: 20110415
  81. PROCYCLIDINE HYDROCHLORIDE [Interacting]
     Active Substance: PROCYCLIDINE HYDROCHLORIDE
     Indication: Extrapyramidal disorder
     Dosage: 15 MILLIGRAM DAILY; 15 MG, ONCE PER DAY (15 MG, QD, 5MG, TID), DURATION : 8 DAYS
     Route: 048
     Dates: start: 20110503, end: 20110510
  82. PROCYCLIDINE HYDROCHLORIDE [Interacting]
     Active Substance: PROCYCLIDINE HYDROCHLORIDE
     Dosage: 5 MILLIGRAM DAILY; 5 MG, ONCE PER DAY, DURATION : 7 DAYS
     Route: 048
     Dates: start: 1995, end: 1995
  83. PROCYCLIDINE HYDROCHLORIDE [Interacting]
     Active Substance: PROCYCLIDINE HYDROCHLORIDE
     Dosage: 20 MILLIGRAM DAILY; 20 MG, ONCE PER DAY, DURATION : 44 DAYS
     Route: 048
     Dates: start: 20110324, end: 20110506
  84. PROCYCLIDINE HYDROCHLORIDE [Interacting]
     Active Substance: PROCYCLIDINE HYDROCHLORIDE
     Dosage: UNK,  UNK, THERAPY DURATION : 50 DAYS, THERAPY END DATE : NASK
     Route: 065
     Dates: start: 20110415
  85. PROCYCLIDINE HYDROCHLORIDE [Interacting]
     Active Substance: PROCYCLIDINE HYDROCHLORIDE
     Dosage: 20 MG,  UNK, 1ST TRIMESTER, UNIT DOSE : 20 MG, THERAPY END DATE : NASK
     Route: 048
     Dates: start: 20110415
  86. PROCYCLIDINE HYDROCHLORIDE [Interacting]
     Active Substance: PROCYCLIDINE HYDROCHLORIDE
     Dosage: 5 MILLIGRAM DAILY; 5 MG, ONCE PER DAY, DURATION : 8 DAYS
     Route: 048
     Dates: start: 20110503, end: 20110510
  87. PROCYCLIDINE HYDROCHLORIDE [Interacting]
     Active Substance: PROCYCLIDINE HYDROCHLORIDE
     Dosage: 15 MILLIGRAM DAILY; 15 MG, ONCE PER DAY (15 MG, QD, 5MG, TID),  DURATION : 8 DAYS
     Route: 048
     Dates: start: 20110503, end: 20110510
  88. PAROXETINE HYDROCHLORIDE [Interacting]
     Active Substance: PAROXETINE HYDROCHLORIDE
     Indication: Product used for unknown indication
     Dosage: UNK,  UNK, THERAPY END DATE : NASK
     Route: 048
     Dates: start: 201012
  89. PAROXETINE HYDROCHLORIDE [Interacting]
     Active Substance: PAROXETINE HYDROCHLORIDE
     Indication: Depression
     Dosage: 180 MG,  UNK, UNIT DOSE : 180 MG, THERAPY DURATION : 11 YEARS
     Route: 065
     Dates: start: 19990801, end: 201105
  90. PAROXETINE HYDROCHLORIDE [Interacting]
     Active Substance: PAROXETINE HYDROCHLORIDE
     Dosage: 60 MILLIGRAM DAILY; 20 MG, 3 TIMES PER DAY (INTERRUPTED), DURATION : 11 YEARS
     Route: 048
     Dates: start: 19990801, end: 201105
  91. PAROXETINE HYDROCHLORIDE [Interacting]
     Active Substance: PAROXETINE HYDROCHLORIDE
     Dosage: 40 MG,UNK (20 MG (2 PER DAY)),UNIT DOSE : 40 MG, THERAPY DURATION : 2 MONTHS
     Route: 065
     Dates: start: 201105, end: 20110706
  92. PAROXETINE HYDROCHLORIDE [Interacting]
     Active Substance: PAROXETINE HYDROCHLORIDE
     Dosage: 20 MG,  UNK (INTERRUPTED), UNIT DOSE : 20 MG, THERAPY DURATION : 5110 DAYS, THERAPY END DATE : NOT A
     Route: 048
     Dates: start: 1997
  93. PAROXETINE HYDROCHLORIDE [Interacting]
     Active Substance: PAROXETINE HYDROCHLORIDE
     Dosage: 60 MILLIGRAM DAILY; 20 MG, 3 TIMES PER DAY, DURATION : 120 DAYS
     Route: 048
     Dates: start: 2011, end: 201105
  94. PAROXETINE HYDROCHLORIDE [Interacting]
     Active Substance: PAROXETINE HYDROCHLORIDE
     Dosage: 60 MILLIGRAM DAILY; 60 MG, ONCE PER DAY, DURATION : 12 YEARS
     Route: 048
     Dates: start: 1999, end: 201105
  95. PAROXETINE HYDROCHLORIDE [Interacting]
     Active Substance: PAROXETINE HYDROCHLORIDE
     Dosage: 40 MILLIGRAM DAILY; 40 MG, ONCE PER DAY,
     Route: 048
  96. PAROXETINE HYDROCHLORIDE [Interacting]
     Active Substance: PAROXETINE HYDROCHLORIDE
     Dosage: UNK,  UNK, THERAPY END DATE : NASK
     Route: 048
     Dates: start: 1999
  97. PAROXETINE HYDROCHLORIDE [Interacting]
     Active Substance: PAROXETINE HYDROCHLORIDE
     Dosage: 60 MILLIGRAM DAILY; 60 MG, ONCE PER DAY, UNINTERRUPTED, DURATION : 5110 DAYS
     Route: 048
     Dates: start: 1997, end: 201105
  98. PAROXETINE HYDROCHLORIDE [Interacting]
     Active Substance: PAROXETINE HYDROCHLORIDE
     Dosage: 60 MILLIGRAM DAILY; 60 MG, ONCE PER DAY (20 MG, THREE TIMES PER DAY), DURATION : 11 YEARS
     Route: 048
     Dates: start: 19990801, end: 201105
  99. PAROXETINE HYDROCHLORIDE [Interacting]
     Active Substance: PAROXETINE HYDROCHLORIDE
     Dosage: UNK,  UNK (INTERRUPTED), THERAPY DURATION : 60 DAYS
     Route: 048
     Dates: start: 201105, end: 20110706
  100. PAROXETINE HYDROCHLORIDE [Interacting]
     Active Substance: PAROXETINE HYDROCHLORIDE
     Dosage: 20 MILLIGRAM DAILY; 20 MG, ONCE PER DAY (20 MG BID), DURATION : 186 DAYS
     Route: 048
     Dates: start: 2011, end: 20110706
  101. PAROXETINE HYDROCHLORIDE [Interacting]
     Active Substance: PAROXETINE HYDROCHLORIDE
     Dosage: 1 DOSAGE FORMS DAILY; 1 DOSAGE FORM, ONCE PER DAY, DURATION : 730 DAYS
     Route: 048
     Dates: start: 200812, end: 20101210

REACTIONS (99)
  - Dyspnoea [Unknown]
  - Mania [Unknown]
  - Tremor [Not Recovered/Not Resolved]
  - Feeling jittery [Unknown]
  - Headache [Unknown]
  - Sleep disorder [Unknown]
  - Agitation [Unknown]
  - Urinary retention [Unknown]
  - Visual impairment [Unknown]
  - Blood sodium decreased [Unknown]
  - Asthenia [Unknown]
  - Disturbance in attention [Unknown]
  - Feeling of despair [Unknown]
  - Emotional disorder [Unknown]
  - Depression [Unknown]
  - Decreased appetite [Unknown]
  - Derealisation [Not Recovered/Not Resolved]
  - Vomiting [Unknown]
  - Hyperhidrosis [Unknown]
  - Delirium [Unknown]
  - H1N1 influenza [Unknown]
  - Pyrexia [Unknown]
  - Disorientation [Not Recovered/Not Resolved]
  - Muscle spasms [Not Recovered/Not Resolved]
  - Skin discolouration [Not Recovered/Not Resolved]
  - Arthralgia [Unknown]
  - Serotonin syndrome [Not Recovered/Not Resolved]
  - Paraesthesia [Unknown]
  - Menstrual disorder [Unknown]
  - Dissociation [Not Recovered/Not Resolved]
  - Hallucinations, mixed [Unknown]
  - Dyskinesia [Unknown]
  - Pruritus [Unknown]
  - Psychotic disorder [Recovered/Resolved]
  - Parosmia [Unknown]
  - Tachycardia [Unknown]
  - Diarrhoea [Unknown]
  - Incontinence [Not Recovered/Not Resolved]
  - Swelling face [Unknown]
  - Vision blurred [Unknown]
  - Hypoaesthesia [Not Recovered/Not Resolved]
  - Gastric pH decreased [Unknown]
  - Dizziness [Unknown]
  - Heart rate increased [Unknown]
  - Sensory loss [Unknown]
  - Balance disorder [Unknown]
  - Drooling [Unknown]
  - Cogwheel rigidity [Unknown]
  - Tinnitus [Unknown]
  - Eye pain [Unknown]
  - Gait disturbance [Unknown]
  - Schizophrenia [Unknown]
  - Neuroleptic malignant syndrome [Unknown]
  - Mydriasis [Unknown]
  - Pallor [Unknown]
  - Fatigue [Unknown]
  - Illness [Unknown]
  - Speech disorder [Unknown]
  - Mood swings [Unknown]
  - Paralysis [Unknown]
  - Swollen tongue [Unknown]
  - Muscle rigidity [Unknown]
  - Contusion [Not Recovered/Not Resolved]
  - Nightmare [Unknown]
  - Dystonia [Unknown]
  - Musculoskeletal stiffness [Unknown]
  - Hypoaesthesia oral [Unknown]
  - Seizure [Unknown]
  - Toxicity to various agents [Unknown]
  - Aphasia [Not Recovered/Not Resolved]
  - Drug withdrawal syndrome [Unknown]
  - Drug interaction [Unknown]
  - Premature labour [Unknown]
  - Suicidal ideation [Not Recovered/Not Resolved]
  - Muscle disorder [Unknown]
  - Muscle spasms [Not Recovered/Not Resolved]
  - Exposure during pregnancy [Unknown]
  - Drug ineffective [Unknown]
  - Limb injury [Unknown]
  - Somnolence [Not Recovered/Not Resolved]
  - Paraesthesia [Unknown]
  - Fatigue [Unknown]
  - Off label use [Unknown]
  - Restless legs syndrome [Not Recovered/Not Resolved]
  - Therapeutic product ineffective [Unknown]
  - Cyanosis [Unknown]
  - Eye pain [Unknown]
  - Anxiety [Unknown]
  - Depersonalisation/derealisation disorder [Not Recovered/Not Resolved]
  - Confusional state [Not Recovered/Not Resolved]
  - Restlessness [Unknown]
  - Paralysis [Unknown]
  - Contusion [Unknown]
  - Somnolence [Unknown]
  - Maternal exposure during pregnancy [Unknown]
  - Muscle spasms [Unknown]
  - Hallucination [Unknown]
  - Feeling of body temperature change [Unknown]
  - Contusion [Unknown]

NARRATIVE: CASE EVENT DATE: 20030101
